FAERS Safety Report 11021898 (Version 1)
Quarter: 2015Q2

REPORT INFORMATION
  Report Type: Spontaneous
  Country: US (occurrence: US)
  Receive Date: 20150413
  Receipt Date: 20150413
  Transmission Date: 20150821
  Serious: Yes (Life-Threatening, Other)
  Sender: FDA-Public Use
  Company Number: US-BAYER-2015-116602

PATIENT
  Age: 57 Year
  Sex: Female

DRUGS (1)
  1. ACETYLSALICYLIC ACID({=100 MG) [Suspect]
     Active Substance: ASPIRIN

REACTIONS (6)
  - Ventricular tachycardia [Recovered/Resolved]
  - Cardiac arrest [Recovering/Resolving]
  - Suicide attempt [None]
  - Intentional self-injury [Recovering/Resolving]
  - Overdose [Recovered/Resolved]
  - Depressed level of consciousness [Recovered/Resolved]
